FAERS Safety Report 9160673 (Version 3)
Quarter: 2014Q1

REPORT INFORMATION
  Report Type: Spontaneous
  Country: IE (occurrence: IE)
  Receive Date: 20130313
  Receipt Date: 20140130
  Transmission Date: 20141002
  Serious: Yes (Hospitalization)
  Sender: FDA-Public Use
  Company Number: PHHY2013IE024292

PATIENT
  Age: 46 Year
  Sex: Female

DRUGS (11)
  1. GILENYA [Suspect]
     Indication: RELAPSING-REMITTING MULTIPLE SCLEROSIS
     Dosage: 0.5 MG, QD
     Route: 048
     Dates: start: 20130311
  2. ADALAT [Suspect]
     Indication: HYPERTENSION
     Dosage: 10 MG, BID
     Route: 048
     Dates: start: 2012, end: 20130311
  3. ADALAT [Suspect]
     Indication: RAYNAUD^S PHENOMENON
  4. ELTROXIN [Concomitant]
     Indication: HYPOTHYROIDISM
     Dosage: 75 UG, BID
     Route: 048
     Dates: start: 2003
  5. LYRICA [Concomitant]
     Indication: PAIN
     Dosage: 75 MG, BID
     Route: 048
     Dates: start: 2008
  6. COZAAR [Concomitant]
     Indication: HYPERTENSION
     Dosage: 25 MG, QD
     Route: 048
     Dates: start: 2009
  7. ANTIDEPRESSANTS [Concomitant]
  8. ZIMOVANE [Concomitant]
     Indication: POOR QUALITY SLEEP
     Route: 048
     Dates: start: 2009
  9. TRAMADOL [Concomitant]
     Dosage: 100 MG, PRN
     Route: 048
  10. SYMMETREL [Concomitant]
     Indication: FATIGUE
     Dosage: 100 MG, BID
     Dates: start: 2002
  11. NEXIUM [Concomitant]
     Indication: GASTROOESOPHAGEAL REFLUX DISEASE
     Dosage: 20 MG, QD
     Route: 048
     Dates: start: 2009

REACTIONS (2)
  - Bradycardia [Recovered/Resolved]
  - Medication error [Not Recovered/Not Resolved]
